FAERS Safety Report 5485194-1 (Version None)
Quarter: 2007Q4

REPORT INFORMATION
  Report Type: 
  Country: None (occurrence: None)
  Receive Date: 20071010
  Receipt Date: 20071010
  Transmission Date: 20080405
  Serious: Yes (Hospitalization)
  Sender: FDA-Public Use
  Company Number: None

PATIENT
  Age: 97 Year
  Sex: Male
  Weight: 81.6475 kg

DRUGS (1)
  1. FELDENE [Suspect]
     Indication: OSTEOARTHRITIS
     Dosage: 2 DAILY PO
     Route: 048
     Dates: start: 20070905, end: 20071005

REACTIONS (3)
  - BLOOD UREA INCREASED [None]
  - CARDIAC FAILURE CONGESTIVE [None]
  - PEPTIC ULCER HAEMORRHAGE [None]
